FAERS Safety Report 8363718-4 (Version None)
Quarter: 2012Q2

REPORT INFORMATION
  Report Type: 
  Country: None (occurrence: None)
  Receive Date: 20120516
  Receipt Date: 20120514
  Transmission Date: 20120825
  Serious: Yes (Other)
  Sender: FDA-Public Use
  Company Number: JP-PFIZER INC-2012098875

PATIENT
  Age: 61 Year
  Sex: Female

DRUGS (3)
  1. ZYPREXA [Concomitant]
     Dosage: UNK, AS NEEDED
     Route: 048
  2. ALPRAZOLAM [Suspect]
     Dosage: 0.8 MG, 3X/DAY
     Route: 048
     Dates: start: 20120419
  3. DEPAS [Concomitant]
     Dosage: UNK, 4X/DAY
     Route: 048

REACTIONS (2)
  - LIVER DISORDER [None]
  - RENAL IMPAIRMENT [None]
